FAERS Safety Report 5369472-2 (Version None)
Quarter: 2007Q2

REPORT INFORMATION
  Report Type: 
  Country: None (occurrence: None)
  Receive Date: 20070621
  Receipt Date: 20070605
  Transmission Date: 20071010
  Serious: Yes (Hospitalization)
  Sender: FDA-Public Use
  Company Number: 012992

PATIENT
  Sex: Male

DRUGS (3)
  1. PRIALT [Suspect]
     Indication: COMPLEX REGIONAL PAIN SYNDROME
     Dosage: UG, ONCE/HOR, INTRATHECAL
     Route: 037
     Dates: start: 20060101
  2. ^PAIN PILLS^() [Suspect]
     Indication: PAIN
     Dosage: ORAL
     Route: 048
  3. ANTIDEPRESSANTS() [Suspect]
     Indication: DRUG USE FOR UNKNOWN INDICATION
     Dosage: ORAL
     Route: 048

REACTIONS (5)
  - INTENTIONAL SELF-INJURY [None]
  - LOSS OF CONSCIOUSNESS [None]
  - MULTIPLE DRUG OVERDOSE [None]
  - SKIN LACERATION [None]
  - SUICIDE ATTEMPT [None]
